FAERS Safety Report 22385609 (Version 1)
Quarter: 2023Q2

REPORT INFORMATION
  Report Type: Spontaneous
  Country: SK (occurrence: None)
  Receive Date: 20230530
  Receipt Date: 20230530
  Transmission Date: 20230721
  Serious: Yes (Other)
  Sender: FDA-Public Use
  Company Number: SK-Merck Healthcare KGaA-9404943

PATIENT
  Age: 0 Year
  Sex: Female

DRUGS (1)
  1. MAVENCLAD [Suspect]
     Active Substance: CLADRIBINE
     Indication: Multiple sclerosis
     Route: 064

REACTIONS (1)
  - Low birth weight baby [Unknown]

NARRATIVE: CASE EVENT DATE: 20221214
